FAERS Safety Report 21918001 (Version 2)
Quarter: 2023Q1

REPORT INFORMATION
  Report Type: Spontaneous
  Country: US (occurrence: US)
  Receive Date: 20230127
  Receipt Date: 20230203
  Transmission Date: 20230417
  Serious: Yes (Death, Hospitalization, Other)
  Sender: FDA-Public Use
  Company Number: US-009507513-2301USA009252

PATIENT
  Age: 70 Year
  Sex: Female
  Weight: 168 kg

DRUGS (13)
  1. KEYTRUDA [Suspect]
     Active Substance: PEMBROLIZUMAB
     Indication: Triple negative breast cancer
     Dosage: 200MG/EVERY 21 DAYS
     Route: 042
     Dates: start: 20221128, end: 20221128
  2. CARBOPLATIN [Concomitant]
     Active Substance: CARBOPLATIN
  3. PACLITAXEL [Concomitant]
     Active Substance: PACLITAXEL
  4. GABAPENTIN [Concomitant]
     Active Substance: GABAPENTIN
  5. POTASSIUM [Concomitant]
     Active Substance: POTASSIUM
  6. FUROSEMIDE [Concomitant]
     Active Substance: FUROSEMIDE
  7. OSTEO-BI-FLEX [Concomitant]
  8. ONDANSETRON [Concomitant]
     Active Substance: ONDANSETRON
  9. OXYBUTYNIN [Concomitant]
     Active Substance: OXYBUTYNIN
  10. PROCHLORPERAZINE EDISYLATE [Concomitant]
     Active Substance: PROCHLORPERAZINE EDISYLATE
  11. TYLENOL [Concomitant]
     Active Substance: ACETAMINOPHEN
  12. CHOLECALCIFEROL [Concomitant]
     Active Substance: CHOLECALCIFEROL
  13. XARELTO [Concomitant]
     Active Substance: RIVAROXABAN

REACTIONS (6)
  - Renal failure [Fatal]
  - Respiratory failure [Fatal]
  - Cardiac failure [Fatal]
  - Cardiomyopathy [Fatal]
  - Pleural effusion [Unknown]
  - Sepsis [Unknown]

NARRATIVE: CASE EVENT DATE: 20221201
